FAERS Safety Report 13483513 (Version 2)
Quarter: 2017Q2

REPORT INFORMATION
  Report Type: Spontaneous
  Country: JP (occurrence: JP)
  Receive Date: 20170424
  Receipt Date: 20170522
  Transmission Date: 20170830
  Serious: Yes (Death, Other)
  Sender: FDA-Public Use
  Company Number: PHJP2017JP013861

PATIENT
  Age: 84 Year
  Sex: Female

DRUGS (1)
  1. VOTRIENT [Suspect]
     Active Substance: PAZOPANIB HYDROCHLORIDE
     Indication: RENAL CELL CARCINOMA
     Dosage: 600 MG, QD
     Route: 048
     Dates: start: 20170317, end: 20170326

REACTIONS (3)
  - Perforation [Fatal]
  - Faeces discoloured [Fatal]
  - Liver function test increased [Recovered/Resolved]

NARRATIVE: CASE EVENT DATE: 201703
